FAERS Safety Report 17427132 (Version 1)
Quarter: 2020Q1

REPORT INFORMATION
  Report Type: Spontaneous
  Country: FR (occurrence: FR)
  Receive Date: 20200218
  Receipt Date: 20200218
  Transmission Date: 20200409
  Serious: Yes (Other)
  Sender: FDA-Public Use
  Company Number: FR-TEVA-2020-FR-1186966

PATIENT
  Age: 33 Year
  Sex: Female
  Weight: 66 kg

DRUGS (1)
  1. COPAXONE [Suspect]
     Active Substance: GLATIRAMER ACETATE
     Indication: MULTIPLE SCLEROSIS
     Dosage: 3 DF
     Route: 058
     Dates: start: 201803

REACTIONS (6)
  - Face oedema [Recovering/Resolving]
  - Dysphagia [Recovering/Resolving]
  - Chest discomfort [Recovering/Resolving]
  - Oesophageal pain [Recovering/Resolving]
  - Eructation [Recovering/Resolving]
  - Angioedema [Recovering/Resolving]

NARRATIVE: CASE EVENT DATE: 201912
